FAERS Safety Report 6103321-X (Version None)
Quarter: 2009Q1

REPORT INFORMATION
  Report Type: 
  Country: None (occurrence: None)
  Receive Date: 20090305
  Receipt Date: 20090226
  Transmission Date: 20090719
  Serious: Yes (Hospitalization)
  Sender: FDA-Public Use
  Company Number: US-BIOGENIDEC-2008BI014990

PATIENT
  Age: 42 Year
  Sex: Female

DRUGS (3)
  1. AVONEX [Suspect]
     Indication: MULTIPLE SCLEROSIS
     Route: 030
     Dates: start: 20020401, end: 20030701
  2. AVONEX [Suspect]
     Route: 030
     Dates: start: 20030901, end: 20041101
  3. AVONEX [Suspect]
     Route: 030
     Dates: start: 20061001, end: 20080101

REACTIONS (1)
  - BREAST CANCER [None]
